FAERS Safety Report 8824480 (Version 1)
Quarter: 2012Q4

REPORT INFORMATION
  Report Type: 
  Country: US (occurrence: US)
  Receive Date: 20121004
  Receipt Date: 20121004
  Transmission Date: 20130627
  Serious: No
  Sender: FDA-Public Use
  Company Number: US-PFIZER INC-2012243737

PATIENT
  Age: 40 Year
  Sex: Female
  Weight: 71.2 kg

DRUGS (1)
  1. NIFEDIPINE [Suspect]
     Indication: HYPERTENSION
     Dosage: 50 mg, daily

REACTIONS (1)
  - Oedema peripheral [Recovered/Resolved]
